FAERS Safety Report 8058147-7 (Version None)
Quarter: 2012Q1

REPORT INFORMATION
  Report Type: 
  Country: None (occurrence: None)
  Receive Date: 20120113
  Receipt Date: 20120109
  Transmission Date: 20120608
  Serious: Yes (Hospitalization)
  Sender: FDA-Public Use
  Company Number: WAES 1201USA00969

PATIENT
  Age: 54 Year
  Sex: Female

DRUGS (16)
  1. IMIPRAMINE HCL TAB [Suspect]
     Indication: PRODUCT USED FOR UNKNOWN INDICATION
     Dosage: 25.0 MG/BID PO
     Route: 048
  2. PLAVIX [Suspect]
     Indication: PRODUCT USED FOR UNKNOWN INDICATION
     Dosage: 75.0 MG/DAILY PO
     Route: 048
  3. TAB DOMPERIDONE [Suspect]
     Indication: PRODUCT USED FOR UNKNOWN INDICATION
     Dosage: 10 MG/BID PO
     Route: 048
  4. MAVIK [Suspect]
     Indication: PRODUCT USED FOR UNKNOWN INDICATION
     Dosage: 2.0 MG/DAILY PO
     Route: 048
  5. PANTOPRAZOLE [Suspect]
     Indication: PRODUCT USED FOR UNKNOWN INDICATION
     Dosage: 40.0 MG/DAILY UNK
  6. SUCRALFATE [Suspect]
     Dosage: 1000.0 MG/BID UNK
  7. DESLORATADINE [Suspect]
     Dosage: 5.0 MG/DAILY UNK
  8. ZETIA [Suspect]
     Indication: PRODUCT USED FOR UNKNOWN INDICATION
     Dosage: 10 MG/DAILY PO
     Route: 048
  9. CRESTOR [Suspect]
     Indication: PRODUCT USED FOR UNKNOWN INDICATION
     Dosage: 20 MG/DAILY PO
     Route: 048
  10. MACROBID [Suspect]
     Dosage: 100.0 MG/DAILY PO
     Route: 048
  11. ATENOLOL [Suspect]
     Indication: PRODUCT USED FOR UNKNOWN INDICATION
     Dosage: 50 MG/DAILY PO
     Route: 048
  12. DETROL LA [Suspect]
     Indication: PRODUCT USED FOR UNKNOWN INDICATION
     Dosage: 4.0 MG/DAILY PO
     Route: 048
  13. STELARA [Suspect]
     Indication: PRODUCT USED FOR UNKNOWN INDICATION
     Dosage: SC
     Route: 058
  14. ALVESCO [Suspect]
     Dosage: 400 MICROGM/UNK PO
     Route: 048
  15. ASPIRIN [Suspect]
     Indication: PRODUCT USED FOR UNKNOWN INDICATION
     Dosage: UNK PO
     Route: 048
  16. SINGULAIR [Concomitant]

REACTIONS (3)
  - PSYCHOTIC DISORDER [None]
  - PARANOIA [None]
  - HALLUCINATION, AUDITORY [None]
